FAERS Safety Report 13073790 (Version 3)
Quarter: 2017Q1

REPORT INFORMATION
  Report Type: Spontaneous
  Country: FR (occurrence: FR)
  Receive Date: 20161229
  Receipt Date: 20170213
  Transmission Date: 20170428
  Serious: Yes (Life-Threatening, Hospitalization)
  Sender: FDA-Public Use
  Company Number: FR-PFIZER INC-2016600073

PATIENT
  Age: 74 Year
  Sex: Female

DRUGS (17)
  1. BISOCE [Suspect]
     Active Substance: BISOPROLOL
     Dosage: UNK
     Dates: start: 20161214
  2. MOLSIDOMINE [Concomitant]
     Active Substance: MOLSIDOMINE
     Dosage: UNK
     Route: 065
  3. GABAPENTIN. [Concomitant]
     Active Substance: GABAPENTIN
     Dosage: UNK
     Route: 065
  4. DIAMICRON [Suspect]
     Active Substance: GLICLAZIDE
     Dosage: UNK
     Dates: start: 20161214
  5. EUPRESSYL [Suspect]
     Active Substance: URAPIDIL
     Indication: HYPERTENSION
     Dosage: 30 MG, 2X/DAY
     Route: 048
     Dates: end: 20161211
  6. LASILIX [Concomitant]
     Active Substance: FUROSEMIDE
     Dosage: UNK
     Route: 065
  7. SPECIAFOLDINE [Concomitant]
     Active Substance: FOLIC ACID
     Dosage: UNK
  8. KARDEGIC [Suspect]
     Active Substance: ASPIRIN LYSINE
     Dosage: 75 MG, 1X/DAY
     Dates: start: 20161213, end: 20161214
  9. BISOCE [Suspect]
     Active Substance: BISOPROLOL
     Indication: HYPERTENSION
     Dosage: 2.5 MG, 2X/DAY
     Route: 048
     Dates: end: 20161211
  10. IMETH [Suspect]
     Active Substance: METHOTREXATE SODIUM
     Indication: RHEUMATOID ARTHRITIS
     Dosage: 15 MG, WEEKLY
     Route: 048
     Dates: start: 2015, end: 20161209
  11. EUPRESSYL [Suspect]
     Active Substance: URAPIDIL
     Dosage: UNK
     Dates: start: 20161214
  12. ADENURIC [Suspect]
     Active Substance: FEBUXOSTAT
     Indication: GOUT
     Dosage: 80 MG, 1X/DAY
     Route: 048
     Dates: end: 20161209
  13. LERCANIDIPINE HYDROCHLORIDE [Concomitant]
     Active Substance: LERCANIDIPINE HYDROCHLORIDE
     Dosage: UNK
     Route: 065
  14. FRAGMINE [Suspect]
     Active Substance: DALTEPARIN SODIUM
     Indication: CEREBROVASCULAR ACCIDENT
     Dosage: 2500 IU, 1X/DAY (0.2 ML SOLUTION)
     Route: 065
     Dates: start: 201611, end: 20161214
  15. KARDEGIC [Suspect]
     Active Substance: ASPIRIN LYSINE
     Indication: CEREBROVASCULAR ACCIDENT
     Dosage: 160 MG, 1X/DAY
     Route: 065
     Dates: end: 20161209
  16. DIAMICRON [Suspect]
     Active Substance: GLICLAZIDE
     Indication: TYPE 2 DIABETES MELLITUS
     Dosage: 60 MG, 1X/DAY
     Route: 048
     Dates: end: 20161209
  17. CRESTOR [Concomitant]
     Active Substance: ROSUVASTATIN CALCIUM
     Dosage: UNK
     Route: 065

REACTIONS (8)
  - Cerebrovascular accident [Unknown]
  - Haematemesis [Recovered/Resolved]
  - Urticaria [Unknown]
  - Peptic ulcer [Recovering/Resolving]
  - Melaena [Recovered/Resolved]
  - Anaemia [Recovered/Resolved]
  - Rash [Unknown]
  - Gastrointestinal haemorrhage [Recovered/Resolved]

NARRATIVE: CASE EVENT DATE: 201611
